FAERS Safety Report 9675639 (Version 1)
Quarter: 2013Q4

REPORT INFORMATION
  Report Type: Spontaneous
  Country: DE (occurrence: DE)
  Receive Date: 20131107
  Receipt Date: 20131107
  Transmission Date: 20140711
  Serious: Yes (Congenital Anomaly, Other)
  Sender: FDA-Public Use
  Company Number: DE-ELI_LILLY_AND_COMPANY-DE201310009213

PATIENT
  Sex: 0

DRUGS (5)
  1. ZYPREXA [Suspect]
     Indication: PSYCHOTIC DISORDER
     Dosage: 7.5 MG, QD
     Route: 064
  2. ZYPREXA [Suspect]
     Indication: ANXIETY DISORDER
  3. PAROXETIN [Suspect]
     Indication: ANXIETY DISORDER
     Dosage: 20 MG, QD
     Route: 064
  4. PAROXETIN [Suspect]
     Dosage: 10 MG, QD
     Route: 064
  5. THYRONAJOD [Concomitant]
     Indication: HYPOTHYROIDISM
     Dosage: 1 DF, QD
     Route: 064

REACTIONS (2)
  - Talipes [Recovering/Resolving]
  - Foetal exposure during pregnancy [Unknown]
